FAERS Safety Report 8285931-7 (Version None)
Quarter: 2012Q2

REPORT INFORMATION
  Report Type: 
  Country: None (occurrence: None)
  Receive Date: 20120415
  Receipt Date: 20120402
  Transmission Date: 20120825
  Serious: Yes (Hospitalization)
  Sender: FDA-Public Use
  Company Number: US-MYLANLABS-2012S1007297

PATIENT
  Age: 68 Year
  Sex: Male

DRUGS (4)
  1. ZOLPIDEM [Suspect]
     Dosage: 30-40MG
     Route: 065
  2. ZOLPIDEM [Suspect]
     Indication: SUBSTANCE ABUSE
     Route: 065
  3. ZOLPIDEM [Suspect]
     Indication: MUSCULOSKELETAL PAIN
     Route: 065
  4. ZOLPIDEM [Suspect]
     Dosage: 30-40MG
     Route: 065

REACTIONS (6)
  - ABNORMAL BEHAVIOUR [None]
  - DELUSION [None]
  - PSYCHOTIC DISORDER [None]
  - SUBSTANCE ABUSE [None]
  - TOXICITY TO VARIOUS AGENTS [None]
  - LOSS OF CONSCIOUSNESS [None]
